FAERS Safety Report 20125242 (Version 3)
Quarter: 2022Q1

REPORT INFORMATION
  Report Type: Spontaneous
  Country: GR (occurrence: GR)
  Receive Date: 20211129
  Receipt Date: 20220216
  Transmission Date: 20220423
  Serious: No
  Sender: FDA-Public Use
  Company Number: GR-PFIZER INC-202101488333

PATIENT
  Age: 15 Year
  Sex: Male

DRUGS (3)
  1. GENOTROPIN [Suspect]
     Active Substance: SOMATROPIN
     Indication: Dwarfism
     Dosage: 11.5 MG FOR 6 DAYS
     Route: 058
  2. GENOTROPIN [Suspect]
     Active Substance: SOMATROPIN
     Indication: Dwarfism
     Dosage: 11.5 MG
  3. GENOTROPIN [Suspect]
     Active Substance: SOMATROPIN
     Dosage: 11.5 MG

REACTIONS (3)
  - Drug dose omission by device [Unknown]
  - Device mechanical issue [Unknown]
  - Device information output issue [Unknown]

NARRATIVE: CASE EVENT DATE: 20211031
